FAERS Safety Report 10304375 (Version 3)
Quarter: 2015Q3

REPORT INFORMATION
  Report Type: Report from Study
  Country: US (occurrence: US)
  Receive Date: 20140715
  Receipt Date: 20150908
  Transmission Date: 20151125
  Serious: Yes (Death)
  Sender: FDA-Public Use
  Company Number: US-PFIZER INC-2014168995

PATIENT
  Age: 43 Year
  Sex: Female
  Weight: 82.45 kg

DRUGS (9)
  1. TRAMADOL. [Concomitant]
     Active Substance: TRAMADOL
     Indication: NEURALGIA
     Dosage: 50 MG, AS NEEDED
     Route: 048
     Dates: start: 20140203
  2. ONE A DAY WOMEN^S [Concomitant]
     Active Substance: MINERALS\VITAMINS
     Indication: SUPPLEMENTATION THERAPY
     Dosage: 1 DF (1 TABLET), 1X/DAY
     Route: 048
     Dates: start: 2012
  3. CLINDAMYCIN [Concomitant]
     Active Substance: CLINDAMYCIN\CLINDAMYCIN PHOSPHATE
     Indication: PNEUMONIA
     Dosage: 300 MG, 4X/DAY (UNKNOWN WHETHER PRESCRIPTION EVER FILLED OR MEDICATIONS TAKEN)
     Route: 048
     Dates: start: 20140604, end: 20140606
  4. FLUCONAZOLE. [Concomitant]
     Active Substance: FLUCONAZOLE
     Indication: PNEUMONIA
     Dosage: 150 MG, 1X/DAY (UNKNOWN WHETHER PRESCRIPTION EVER FILLED OR MEDICATIONS TAKEN)
     Route: 048
     Dates: start: 20140604, end: 20140606
  5. BLINDED PREGABALIN [Suspect]
     Active Substance: PREGABALIN
     Indication: NEURALGIA
     Dosage: BLINDED THERAPY
     Route: 048
     Dates: start: 20140227, end: 20140522
  6. BLINDED PREGABALIN [Suspect]
     Active Substance: PREGABALIN
     Indication: NEURALGIA
     Dosage: BLINDED THERAPY
     Route: 048
     Dates: start: 20140227, end: 20140522
  7. CLONAZEPAM. [Concomitant]
     Active Substance: CLONAZEPAM
     Indication: DEPRESSION
     Dosage: 0.5 MG, 2X/DAY (UNKNOWN WHETHER PRESCRIPTION EVER FILLED OR MEDICATIONS TAKEN)
     Route: 048
     Dates: start: 20140604, end: 20140606
  8. OXYCODONE HYDROCHLORIDE. [Suspect]
     Active Substance: OXYCODONE HYDROCHLORIDE
     Indication: NEURALGIA
     Dosage: 30 DF (TABLETS) OF 10 MG OXYCODONE, ONCE
     Route: 048
     Dates: start: 20140606, end: 20140606
  9. VITAMIN C [Concomitant]
     Active Substance: ASCORBIC ACID
     Indication: SUPPLEMENTATION THERAPY
     Dosage: 50 MG, 1X/DAY
     Route: 048
     Dates: start: 2012

REACTIONS (1)
  - Overdose [Fatal]

NARRATIVE: CASE EVENT DATE: 20140606
